FAERS Safety Report 24981768 (Version 1)
Quarter: 2025Q1

REPORT INFORMATION
  Report Type: Report from Study
  Country: JP (occurrence: JP)
  Receive Date: 20250218
  Receipt Date: 20250218
  Transmission Date: 20250408
  Serious: Yes (Death, Other)
  Sender: MERCK SHARP & DOHME LLC
  Company Number: JP-BAYER-2025A020968

PATIENT
  Age: 89 Year
  Sex: Female
  Weight: 49 kg

DRUGS (21)
  1. VERQUVO [Suspect]
     Active Substance: VERICIGUAT
     Indication: Cardiac failure chronic
     Dates: start: 20240717
  2. VERQUVO [Suspect]
     Active Substance: VERICIGUAT
     Indication: Cardiac failure chronic
     Dates: start: 20240917
  3. ROSUVASTATIN CALCIUM [Concomitant]
     Active Substance: ROSUVASTATIN CALCIUM
     Route: 048
  4. ASPIRIN [Concomitant]
     Active Substance: ASPIRIN
     Route: 048
  5. DAPRODUSTAT [Concomitant]
     Active Substance: DAPRODUSTAT
     Route: 048
  6. AZOSEMIDE [Concomitant]
     Active Substance: AZOSEMIDE
     Route: 048
  7. TOCOPHERYL NICOTINATE, D-.ALPHA. [Concomitant]
     Active Substance: TOCOPHERYL NICOTINATE, D-.ALPHA.
     Route: 048
  8. TRESIBA [Concomitant]
     Active Substance: INSULIN DEGLUDEC
  9. CLOPIDOGREL [Concomitant]
     Active Substance: CLOPIDOGREL BISULFATE
     Route: 048
  10. TELMISARTAN [Concomitant]
     Active Substance: TELMISARTAN
     Route: 048
  11. LINZESS [Concomitant]
     Active Substance: LINACLOTIDE
     Route: 048
  12. PREGABALIN [Concomitant]
     Active Substance: PREGABALIN
     Route: 048
  13. FEBUXOSTAT [Concomitant]
     Active Substance: FEBUXOSTAT
     Route: 048
  14. VONOPRAZAN FUMARATE [Concomitant]
     Active Substance: VONOPRAZAN FUMARATE
     Route: 048
  15. CARVEDILOL [Concomitant]
     Active Substance: CARVEDILOL
     Route: 048
  16. RISPERIDONE [Concomitant]
     Active Substance: RISPERIDONE
     Route: 048
  17. TOLVAPTAN [Concomitant]
     Active Substance: TOLVAPTAN
     Route: 048
  18. CILNIDIPINE [Concomitant]
     Active Substance: CILNIDIPINE
     Route: 048
  19. INSULIN NOS [Concomitant]
     Active Substance: INSULIN NOS
  20. LEVOTHYROXINE SODIUM [Concomitant]
     Active Substance: LEVOTHYROXINE SODIUM
     Route: 048
  21. MIYA-BM [Concomitant]
     Active Substance: CLOSTRIDIUM BUTYRICUM SPORES STRAIN M-55
     Route: 048

REACTIONS (1)
  - Death [Fatal]

NARRATIVE: CASE EVENT DATE: 20241105
